FAERS Safety Report 17190790 (Version 6)
Quarter: 2020Q1

REPORT INFORMATION
  Report Type: Report from Study
  Country: AU (occurrence: AU)
  Receive Date: 20191223
  Receipt Date: 20200127
  Transmission Date: 20200409
  Serious: Yes (Other)
  Sender: FDA-Public Use
  Company Number: AU-BEH-2019110716

PATIENT
  Age: 72 Year
  Sex: Male
  Weight: 115 kg

DRUGS (11)
  1. HIZENTRA [Suspect]
     Active Substance: HUMAN IMMUNOGLOBULIN G
     Dosage: 20 GRAM (100ML), QW
     Route: 058
     Dates: start: 201912
  2. PALEXIA [Concomitant]
     Active Substance: TAPENTADOL HYDROCHLORIDE
  3. HIZENTRA [Suspect]
     Active Substance: HUMAN IMMUNOGLOBULIN G
     Dosage: 20 GRAM (100 ML), TOT
     Route: 058
     Dates: start: 20191212, end: 20191212
  4. HIZENTRA [Suspect]
     Active Substance: HUMAN IMMUNOGLOBULIN G
     Dosage: 20 GRAM (100 ML), QW
     Route: 058
     Dates: start: 20191220
  5. HIZENTRA [Suspect]
     Active Substance: HUMAN IMMUNOGLOBULIN G
     Dosage: 20 GRAM (100ML), QW
     Route: 058
     Dates: start: 201911
  6. ZIRCOL [Concomitant]
  7. PERINDOPRIL [Concomitant]
     Active Substance: PERINDOPRIL
  8. HIZENTRA [Suspect]
     Active Substance: HUMAN IMMUNOGLOBULIN G
     Indication: CHRONIC INFLAMMATORY DEMYELINATING POLYRADICULONEUROPATHY
     Dosage: 20 GRAM (100 ML), QW
     Route: 058
  9. HIZENTRA [Suspect]
     Active Substance: HUMAN IMMUNOGLOBULIN G
     Dosage: 20 GRAM (100 ML), TOT
     Route: 058
     Dates: start: 20191205, end: 20191205
  10. HIZENTRA [Suspect]
     Active Substance: HUMAN IMMUNOGLOBULIN G
     Dosage: UNK
     Route: 058
  11. HIZENTRA [Suspect]
     Active Substance: HUMAN IMMUNOGLOBULIN G
     Dosage: UNK
     Route: 058

REACTIONS (19)
  - Swelling [Unknown]
  - Erythema [Unknown]
  - Infusion site swelling [Recovering/Resolving]
  - Injection site rash [Not Recovered/Not Resolved]
  - Diaphragmatic spasm [Recovered/Resolved]
  - Injection site bruising [Recovering/Resolving]
  - Muscle spasms [Recovered/Resolved]
  - Infusion site erythema [Not Recovered/Not Resolved]
  - Infusion site swelling [Recovered/Resolved]
  - Gait disturbance [Not Recovered/Not Resolved]
  - Paraesthesia [Unknown]
  - Neuralgia [Unknown]
  - Infusion site swelling [Not Recovered/Not Resolved]
  - Sciatica [Not Recovered/Not Resolved]
  - Injection site reaction [Recovering/Resolving]
  - Rash [Recovering/Resolving]
  - Infusion site erythema [Recovering/Resolving]
  - Infusion site erythema [Recovered/Resolved]
  - Rash [Recovered/Resolved]

NARRATIVE: CASE EVENT DATE: 201912
